FAERS Safety Report 14392706 (Version 1)
Quarter: 2018Q1

REPORT INFORMATION
  Report Type: Spontaneous
  Country: US (occurrence: US)
  Receive Date: 20180112
  Receipt Date: 20180112
  Transmission Date: 20180509
  Serious: No
  Sender: FDA-Public Use
  Company Number: None

PATIENT

DRUGS (2)
  1. LUMIGAN [Suspect]
     Active Substance: BIMATOPROST
  2. TRAVATAN Z [Suspect]
     Active Substance: TRAVOPROST

REACTIONS (2)
  - Eye irritation [None]
  - Dry eye [None]
